FAERS Safety Report 5471358-X (Version None)
Quarter: 2007Q3

REPORT INFORMATION
  Report Type: 
  Country: None (occurrence: None)
  Receive Date: 20070928
  Receipt Date: 20060901
  Transmission Date: 20080115
  Serious: No
  Sender: FDA-Public Use
  Company Number: US-BRISTOL-MYERS SQUIBB COMPANY-13496179

PATIENT
  Age: 59 Year
  Sex: Female
  Weight: 89 kg

DRUGS (11)
  1. DEFINITY [Suspect]
     Indication: ECHOCARDIOGRAM
     Dosage: DEFINITY: 1 DOSAGE FORM CONSISTS OF 2CC OF SOLUTION (1.5CC DEFINITY IN 8CC OF SALINE).
     Route: 040
     Dates: start: 20060830, end: 20060830
  2. PRAVACHOL [Concomitant]
  3. IMURAN [Concomitant]
  4. SANDIMMUNE [Concomitant]
  5. HYTRINE [Concomitant]
  6. LOTENSIN [Concomitant]
  7. LASIX [Concomitant]
  8. INSULIN [Concomitant]
  9. CARDIZEM [Concomitant]
  10. MAGNESIUM SULFATE [Concomitant]
  11. TRICOR [Concomitant]

REACTIONS (4)
  - ERYTHEMA [None]
  - FEELING HOT [None]
  - FLUSHING [None]
  - HEART RATE INCREASED [None]
